FAERS Safety Report 22833053 (Version 2)
Quarter: 2023Q4

REPORT INFORMATION
  Report Type: Spontaneous
  Country: US (occurrence: US)
  Receive Date: 20230817
  Receipt Date: 20231023
  Transmission Date: 20240110
  Serious: No
  Sender: FDA-Public Use
  Company Number: US-PFIZER INC-PV202300139968

PATIENT
  Age: 74 Year
  Sex: Female
  Weight: 45.351 kg

DRUGS (2)
  1. DOXYCYCLINE HYCLATE [Suspect]
     Active Substance: DOXYCYCLINE HYCLATE
     Indication: Lyme disease
     Dosage: UNK
  2. DOXYCYCLINE HYCLATE [Suspect]
     Active Substance: DOXYCYCLINE HYCLATE
     Dosage: 100 MG, 2X/DAY, (TWICE PER DAY FOR 14 DAYS)
     Dates: start: 20230724, end: 2023

REACTIONS (2)
  - Gastrointestinal disorder [Unknown]
  - Off label use [Unknown]
